FAERS Safety Report 19815351 (Version 1)
Quarter: 2021Q3

REPORT INFORMATION
  Report Type: Spontaneous
  Country: US (occurrence: US)
  Receive Date: 20210910
  Receipt Date: 20210910
  Transmission Date: 20211014
  Serious: Yes (Hospitalization, Other)
  Sender: FDA-Public Use
  Company Number: US-PFIZER INC-202101139966

PATIENT
  Age: 60 Year
  Sex: Female

DRUGS (5)
  1. VARICELLA ZOSTER VACCINE [Suspect]
     Active Substance: VARICELLA-ZOSTER VIRUS STRAIN OKA/MERCK LIVE ANTIGEN
     Dosage: UNK
     Dates: start: 2021
  2. PENICILLIN G BENZATHINE/PENICILLIN G PROCAINE [Suspect]
     Active Substance: PENICILLIN G BENZATHINE\PENICILLIN G PROCAINE
     Dosage: UNK
  3. XOSPATA [Suspect]
     Active Substance: GILTERITINIB
     Indication: ACUTE MYELOID LEUKAEMIA
     Dosage: 120 MG, 1X/DAY
     Route: 048
     Dates: start: 20191211
  4. XOSPATA [Suspect]
     Active Substance: GILTERITINIB
     Dosage: 120 MG, 1X/DAY
     Route: 048
  5. XOSPATA [Suspect]
     Active Substance: GILTERITINIB
     Dosage: 120 MG, 1X/DAY
     Route: 048

REACTIONS (7)
  - Hepatic enzyme increased [Unknown]
  - Gastrooesophageal reflux disease [Unknown]
  - Weight increased [Unknown]
  - Rash [Recovered/Resolved]
  - Acute myeloid leukaemia recurrent [Unknown]
  - White blood cell disorder [Unknown]
  - Drug hypersensitivity [Unknown]

NARRATIVE: CASE EVENT DATE: 202103
